FAERS Safety Report 4755806-6 (Version None)
Quarter: 2005Q3

REPORT INFORMATION
  Report Type: 
  Country: None (occurrence: None)
  Receive Date: 20050829
  Receipt Date: 20050811
  Transmission Date: 20060218
  Serious: Yes (Other)
  Sender: FDA-Public Use
  Company Number: TRP_0322_2005

PATIENT
  Age: 59 Year
  Sex: Female

DRUGS (7)
  1. RIBASPHERE [Suspect]
     Indication: HEPATITIS C
     Dosage: DF PO
     Route: 048
     Dates: start: 20040927, end: 20050709
  2. PEG-INTRON [Suspect]
     Indication: HEPATITIS C
     Dosage: DF SC
     Route: 058
     Dates: start: 20040927, end: 20050709
  3. ELAVIL [Concomitant]
  4. LIBRIUM [Concomitant]
  5. MENEST [Concomitant]
  6. PREMARIN [Concomitant]
  7. ZOLOFT [Concomitant]

REACTIONS (2)
  - BREAST CANCER FEMALE [None]
  - WHITE BLOOD CELL COUNT DECREASED [None]
